FAERS Safety Report 22596787 (Version 1)
Quarter: 2023Q2

REPORT INFORMATION
  Report Type: Spontaneous
  Country: FR (occurrence: FR)
  Receive Date: 20230613
  Receipt Date: 20230613
  Transmission Date: 20230722
  Serious: Yes (Hospitalization)
  Sender: FDA-Public Use
  Company Number: FR-BAUSCH-BL-2023-008471

PATIENT
  Age: 73 Year
  Sex: Female

DRUGS (7)
  1. ZYCLARA [Suspect]
     Active Substance: IMIQUIMOD
     Indication: Actinic keratosis
     Dosage: UNK
     Route: 065
     Dates: start: 202304, end: 20230419
  2. ZYCLARA [Suspect]
     Active Substance: IMIQUIMOD
     Dosage: UNK (1 SACHET DAILY)
     Route: 061
     Dates: start: 20230412, end: 20230419
  3. SIMVASTATIN [Concomitant]
     Active Substance: SIMVASTATIN
     Indication: Product used for unknown indication
  4. TOVIAZ [Concomitant]
     Active Substance: FESOTERODINE FUMARATE
     Indication: Product used for unknown indication
  5. ESOMEPRAZOLE [Concomitant]
     Active Substance: ESOMEPRAZOLE
     Indication: Product used for unknown indication
  6. GINKGO EXTRACT\HEPTAMINOL\TROXERUTIN [Concomitant]
     Active Substance: GINKGO\HEPTAMINOL\TROXERUTIN
     Indication: Product used for unknown indication
  7. PRIMOLIN [Concomitant]
     Indication: Product used for unknown indication

REACTIONS (4)
  - Herpes virus infection [Unknown]
  - Tongue ulceration [Unknown]
  - Lip ulceration [Unknown]
  - Skin erosion [Unknown]

NARRATIVE: CASE EVENT DATE: 20230419
